FAERS Safety Report 7620426-2 (Version None)
Quarter: 2011Q3

REPORT INFORMATION
  Report Type: 
  Country: None (occurrence: None)
  Receive Date: 20110719
  Receipt Date: 20110712
  Transmission Date: 20111222
  Serious: Yes (Death, Other)
  Sender: FDA-Public Use
  Company Number: US-JNJFOC-20110609489

PATIENT
  Age: 5 Decade
  Sex: Male

DRUGS (1)
  1. NUCYNTA [Suspect]
     Indication: ANALGESIC THERAPY
     Route: 048

REACTIONS (2)
  - SUICIDAL IDEATION [None]
  - DEATH [None]
